FAERS Safety Report 5507626-2 (Version None)
Quarter: 2007Q4

REPORT INFORMATION
  Report Type: 
  Country: None (occurrence: None)
  Receive Date: 20071102
  Receipt Date: 20071008
  Transmission Date: 20080405
  Serious: Yes (Hospitalization)
  Sender: FDA-Public Use
  Company Number: 2007US002473

PATIENT
  Age: 31 Year
  Sex: Male

DRUGS (3)
  1. PROGRAF [Suspect]
     Indication: RENAL TRANSPLANT
     Dosage: 5 MG, TID; ORAL
     Route: 048
     Dates: start: 20060101, end: 20060601
  2. MYCOPHENOLATE MOFETIL [Concomitant]
  3. CYCLOSPORINE [Concomitant]

REACTIONS (6)
  - ASTHENIA [None]
  - CHILLS [None]
  - DIARRHOEA [None]
  - DRUG PRESCRIBING ERROR [None]
  - DRUG TOXICITY [None]
  - INCORRECT DOSE ADMINISTERED [None]
